FAERS Safety Report 8829523 (Version 2)
Quarter: 2012Q4

REPORT INFORMATION
  Report Type: 
  Country: US (occurrence: US)
  Receive Date: 20121008
  Receipt Date: 20121116
  Transmission Date: 20130627
  Serious: Yes (Other)
  Sender: FDA-Public Use
  Company Number: US-ROCHE-1131915

PATIENT
  Sex: Male

DRUGS (9)
  1. RITUXAN [Suspect]
     Indication: CHRONIC LYMPHOCYTIC LEUKAEMIA
     Route: 065
     Dates: start: 20000828
  2. RITUXAN [Suspect]
     Indication: LYMPHOCYTIC LYMPHOMA
     Dosage: split dose 100 mg day 1
     Route: 065
  3. RITUXAN [Suspect]
     Dosage: q/28d cycle
     Route: 065
  4. RITUXAN [Suspect]
     Dosage: weekly x 6
     Route: 042
     Dates: start: 200010, end: 20041221
  5. CYTOXAN [Concomitant]
     Indication: CHRONIC LYMPHOCYTIC LEUKAEMIA
     Route: 050
  6. PREDNISONE [Concomitant]
     Route: 050
  7. COUMADIN [Concomitant]
  8. VITAMIN B12 [Concomitant]
  9. BACTRIM [Concomitant]

REACTIONS (4)
  - Chronic lymphocytic leukaemia [Unknown]
  - Abdominal distension [Unknown]
  - Weight increased [Unknown]
  - Post herpetic neuralgia [Unknown]
